FAERS Safety Report 25660478 (Version 1)
Quarter: 2025Q3

REPORT INFORMATION
  Report Type: Spontaneous
  Country: US (occurrence: US)
  Receive Date: 20250808
  Receipt Date: 20250808
  Transmission Date: 20251021
  Serious: No
  Sender: MYLAN
  Company Number: US-MYLANLABS-2025M1065364

PATIENT
  Sex: Male
  Weight: 83.91 kg

DRUGS (8)
  1. LYRICA [Suspect]
     Active Substance: PREGABALIN
     Indication: Neuropathy peripheral
     Dosage: UNK, BID (ONE CAPSULE 50 MG IN THE MORNING AND TWO CAPSULES 50 MG AT BEDTIME)
  2. LYRICA [Suspect]
     Active Substance: PREGABALIN
     Dosage: UNK, BID (ONE CAPSULE 50 MG IN THE MORNING AND TWO CAPSULES 50 MG AT BEDTIME)
     Route: 065
  3. LYRICA [Suspect]
     Active Substance: PREGABALIN
     Dosage: UNK, BID (ONE CAPSULE 50 MG IN THE MORNING AND TWO CAPSULES 50 MG AT BEDTIME)
     Route: 065
  4. LYRICA [Suspect]
     Active Substance: PREGABALIN
     Dosage: UNK, BID (ONE CAPSULE 50 MG IN THE MORNING AND TWO CAPSULES 50 MG AT BEDTIME)
  5. JANUMET [Concomitant]
     Active Substance: METFORMIN HYDROCHLORIDE\SITAGLIPTIN PHOSPHATE
  6. JANUMET [Concomitant]
     Active Substance: METFORMIN HYDROCHLORIDE\SITAGLIPTIN PHOSPHATE
     Route: 065
  7. JANUMET [Concomitant]
     Active Substance: METFORMIN HYDROCHLORIDE\SITAGLIPTIN PHOSPHATE
     Route: 065
  8. JANUMET [Concomitant]
     Active Substance: METFORMIN HYDROCHLORIDE\SITAGLIPTIN PHOSPHATE

REACTIONS (2)
  - Dyspnoea [Unknown]
  - Peripheral swelling [Unknown]
